FAERS Safety Report 25725950 (Version 1)
Quarter: 2025Q3

REPORT INFORMATION
  Report Type: Spontaneous
  Country: US (occurrence: None)
  Receive Date: 20250823
  Receipt Date: 20250823
  Transmission Date: 20251020
  Serious: Yes (Other)
  Sender: FDA-CTU
  Company Number: None

PATIENT
  Age: 59 Year
  Sex: Female

DRUGS (1)
  1. DULOXETINE [Suspect]
     Active Substance: DULOXETINE
     Dosage: FREQUENCY : DAILY;?
     Route: 048
     Dates: start: 20250715

REACTIONS (1)
  - Vertigo [None]

NARRATIVE: CASE EVENT DATE: 20250820
